FAERS Safety Report 4633971-9 (Version None)
Quarter: 2005Q1

REPORT INFORMATION
  Report Type: 
  Country: None (occurrence: None)
  Receive Date: 20050325
  Receipt Date: 20041228
  Transmission Date: 20050727
  Serious: No
  Sender: FDA-Public Use
  Company Number: USA041287014

PATIENT
  Sex: Female
  Weight: 59 kg

DRUGS (5)
  1. FORTEO [Suspect]
     Indication: OSTEOPOROSIS
     Dosage: 20 UG/1 DAY
     Dates: start: 20040401
  2. AVALIDE [Concomitant]
  3. FOSAMAX [Concomitant]
  4. SYNTHROID [Concomitant]
  5. MIACALCIN [Concomitant]

REACTIONS (5)
  - ANOREXIA [None]
  - PRURITUS [None]
  - RASH PAPULAR [None]
  - SUBCUTANEOUS NODULE [None]
  - WEIGHT DECREASED [None]
